FAERS Safety Report 9369818 (Version 2)
Quarter: 2013Q3

REPORT INFORMATION
  Report Type: Spontaneous
  Country: GB (occurrence: GB)
  Receive Date: 20130626
  Receipt Date: 20130806
  Transmission Date: 20140515
  Serious: Yes (Other)
  Sender: FDA-Public Use
  Company Number: GB-JNJFOC-20130616821

PATIENT
  Age: 23 Year
  Sex: Male

DRUGS (8)
  1. INFLIXIMAB, RECOMBINANT [Suspect]
     Indication: ANORECTAL DISORDER
     Route: 042
  2. INFLIXIMAB, RECOMBINANT [Suspect]
     Indication: CROHN^S DISEASE
     Route: 042
  3. AZATHIOPRINE [Suspect]
     Indication: ANORECTAL DISORDER
     Route: 065
  4. AZATHIOPRINE [Suspect]
     Indication: CROHN^S DISEASE
     Route: 065
  5. METHOTREXATE [Suspect]
     Indication: ANORECTAL DISORDER
     Route: 065
  6. METHOTREXATE [Suspect]
     Indication: CROHN^S DISEASE
     Route: 065
  7. ADALIMUMAB [Suspect]
     Indication: ANORECTAL DISORDER
     Dosage: 80/40MG INDUCTION REGIMEN FOLLOWED BY FORTNIGHTLY 40MG TREATMENT.
     Route: 065
  8. ADALIMUMAB [Suspect]
     Indication: CROHN^S DISEASE
     Dosage: 80/40MG INDUCTION REGIMEN FOLLOWED BY FORTNIGHTLY 40MG TREATMENT.
     Route: 065

REACTIONS (3)
  - Sepsis [Unknown]
  - Large intestine perforation [Unknown]
  - Psoas abscess [Unknown]
